FAERS Safety Report 21544653 (Version 1)
Quarter: 2022Q4

REPORT INFORMATION
  Report Type: Spontaneous
  Country: US (occurrence: None)
  Receive Date: 20221101
  Receipt Date: 20221101
  Transmission Date: 20230112
  Serious: No
  Sender: FDA-Public Use
  Company Number: None

PATIENT
  Age: 76 Year
  Sex: Male
  Weight: 80.1 kg

DRUGS (6)
  1. MIDODRINE [Suspect]
     Active Substance: MIDODRINE
     Dosage: OTHER QUANTITY : 1 TABLET(S);?FREQUENCY : DAILY;?
     Route: 048
     Dates: start: 20220901, end: 20221021
  2. TAMSULOSIN [Concomitant]
     Active Substance: TAMSULOSIN
  3. MIRTAZAPINE [Concomitant]
     Active Substance: MIRTAZAPINE
  4. MINERALS\VITAMINS [Concomitant]
     Active Substance: MINERALS\VITAMINS
  5. pro biotics [Concomitant]
  6. LORATADINE [Concomitant]
     Active Substance: LORATADINE

REACTIONS (3)
  - Vision blurred [None]
  - Muscle disorder [None]
  - Head discomfort [None]

NARRATIVE: CASE EVENT DATE: 20221010
